FAERS Safety Report 12216758 (Version 1)
Quarter: 2016Q1

REPORT INFORMATION
  Report Type: Spontaneous
  Country: US (occurrence: US)
  Receive Date: 20160329
  Receipt Date: 20160329
  Transmission Date: 20160526
  Serious: No
  Sender: FDA-Public Use
  Company Number: US-PFIZER INC-2016158331

PATIENT
  Age: 54 Year
  Sex: Female
  Weight: 122.92 kg

DRUGS (2)
  1. GABAPENTIN. [Suspect]
     Active Substance: GABAPENTIN
     Dosage: 100 MG IN THE MORNING AND 200 MG IN THE NIGHT
     Route: 048
  2. GABAPENTIN. [Suspect]
     Active Substance: GABAPENTIN
     Indication: DIABETIC NEUROPATHY
     Dosage: 100 MG, 2X/DAY
     Route: 048
     Dates: start: 2015

REACTIONS (5)
  - Tachyphrenia [Not Recovered/Not Resolved]
  - Drug ineffective for unapproved indication [Unknown]
  - Abnormal dreams [Unknown]
  - Depression [Unknown]
  - Thinking abnormal [Unknown]
